FAERS Safety Report 11426530 (Version 1)
Quarter: 2015Q3

REPORT INFORMATION
  Report Type: Spontaneous
  Country: US (occurrence: US)
  Receive Date: 20150821
  Receipt Date: 20150821
  Transmission Date: 20151125
  Serious: No
  Sender: FDA-Public Use
  Company Number: US-ELI_LILLY_AND_COMPANY-US201307002124

PATIENT
  Age: 68 Year
  Sex: Male

DRUGS (13)
  1. RISPERDAL [Concomitant]
     Active Substance: RISPERIDONE
  2. BENZTROPINE [Concomitant]
     Active Substance: BENZTROPINE
  3. CALCIUM [Concomitant]
     Active Substance: CALCIUM
  4. MAGNESIUM [Concomitant]
     Active Substance: MAGNESIUM
  5. ATIVAN [Concomitant]
     Active Substance: LORAZEPAM
  6. FISH OIL [Concomitant]
     Active Substance: FISH OIL
  7. CENTRUM SILVER [Concomitant]
     Active Substance: VITAMINS
  8. TESTOSTERONE. [Concomitant]
     Active Substance: TESTOSTERONE
     Dosage: 400 DF, OTHER
  9. CIALIS [Suspect]
     Active Substance: TADALAFIL
     Indication: ERECTILE DYSFUNCTION
     Dosage: 20 MG, PRN
     Dates: start: 201306
  10. CIALIS [Suspect]
     Active Substance: TADALAFIL
     Dosage: 1 DF, UNK
     Dates: start: 2012
  11. LAMICTAL [Concomitant]
     Active Substance: LAMOTRIGINE
  12. ARICEPT [Concomitant]
     Active Substance: DONEPEZIL HYDROCHLORIDE
  13. PRADAXA [Concomitant]
     Active Substance: DABIGATRAN ETEXILATE MESYLATE

REACTIONS (1)
  - Ejaculation failure [Unknown]

NARRATIVE: CASE EVENT DATE: 20130702
